FAERS Safety Report 5713864-6 (Version None)
Quarter: 2008Q2

REPORT INFORMATION
  Report Type: 
  Country: None (occurrence: None)
  Receive Date: 20080421
  Receipt Date: 20080408
  Transmission Date: 20081010
  Serious: Yes (Life-Threatening, Hospitalization)
  Sender: FDA-Public Use
  Company Number: FRPFM-S-20080086

PATIENT
  Age: 31 Year
  Sex: Male

DRUGS (7)
  1. NAVELBINE [Suspect]
     Indication: KAPOSI'S SARCOMA
     Dosage: 25 MG/M2 QD IV
     Route: 042
     Dates: start: 20080218, end: 20080218
  2. NAVELBINE [Suspect]
     Indication: KAPOSI'S SARCOMA
     Dosage: 25 MG/M2 QD IV
     Route: 042
     Dates: start: 20080225, end: 20080225
  3. KALETRA [Suspect]
     Indication: HIV INFECTION
     Dosage: 400 MG QD
     Dates: start: 20070720
  4. MICONAZOLE NITRATE [Suspect]
     Indication: FUNGAL INFECTION
     Dates: start: 20080220, end: 20080307
  5. TRUVADA. MFR: NOT SPECIFIED [Concomitant]
  6. SEROPLEX 20 [Concomitant]
  7. SERESTA 50 [Concomitant]

REACTIONS (11)
  - ALANINE AMINOTRANSFERASE INCREASED [None]
  - ASPARTATE AMINOTRANSFERASE INCREASED [None]
  - BLOOD BILIRUBIN INCREASED [None]
  - DEPRESSION [None]
  - DRUG INTERACTION [None]
  - FEBRILE BONE MARROW APLASIA [None]
  - KAPOSI'S SARCOMA [None]
  - LIVER FUNCTION TEST ABNORMAL [None]
  - MUCOSAL INFLAMMATION [None]
  - ORAL FUNGAL INFECTION [None]
  - WHITE BLOOD CELL COUNT DECREASED [None]
